FAERS Safety Report 7720128-8 (Version None)
Quarter: 2011Q3

REPORT INFORMATION
  Report Type: 
  Country: None (occurrence: None)
  Receive Date: 20110824
  Receipt Date: 20110809
  Transmission Date: 20111222
  Serious: Yes (Death, Other)
  Sender: FDA-Public Use
  Company Number: 2011MA011583

PATIENT
  Age: 30 Year
  Sex: Female

DRUGS (10)
  1. PHENAZON (NO PREF. NAME) [Suspect]
     Indication: TOXICITY TO VARIOUS AGENTS
     Dosage: 19.8 UG/G ON AUTOPSY
  2. PREGABALIN [Suspect]
     Indication: TOXICITY TO VARIOUS AGENTS
     Dosage: 5.0 UG/G ON AUTOPSY
  3. AMPHETAMINE (NO PREF. NAME) [Suspect]
     Indication: TOXICITY TO VARIOUS AGENTS
     Dosage: 0.04 UG/G ON AUTOPSY
  4. TRAMADOL HYDROCHLORIDE [Suspect]
     Indication: TOXICITY TO VARIOUS AGENTS
     Dosage: 0.5 UG/G ON AUTOPSY
  5. FLUOXETINE HYDROCHLORIDE [Suspect]
     Dosage: 0.6 UG/G ON AUTOPSY
  6. MITRAGYNINE (NO PREF. NAME) [Suspect]
     Indication: TOXICITY TO VARIOUS AGENTS
     Dosage: 0.04 UG/G ON AUTOPSY
  7. FLUOXETINE HYDROCHLORIDE [Suspect]
     Indication: TOXICITY TO VARIOUS AGENTS
     Dosage: 0.5 UG/G ON AUTOPSY
  8. NORDIAZEPAM (NO PREF. NAME) [Suspect]
     Indication: TOXICITY TO VARIOUS AGENTS
     Dosage: 0.3 UG/G ON AUTOPSY
  9. DIAZEPAM [Suspect]
     Dosage: 03. UG/G AUTOPSY
  10. OLANZAPINE [Suspect]
     Indication: TOXICITY TO VARIOUS AGENTS
     Dosage: 02. UG/G ON AUTOPSY

REACTIONS (5)
  - HEPATIC STEATOSIS [None]
  - CARDIAC ARREST [None]
  - TOXICITY TO VARIOUS AGENTS [None]
  - LOSS OF CONSCIOUSNESS [None]
  - PULMONARY CONGESTION [None]
